FAERS Safety Report 19506043 (Version 2)
Quarter: 2021Q3

REPORT INFORMATION
  Report Type: Spontaneous
  Country: US (occurrence: US)
  Receive Date: 20210708
  Receipt Date: 20210716
  Transmission Date: 20211014
  Serious: Yes (Hospitalization)
  Sender: FDA-Public Use
  Company Number: US-SA-2021SA220035

PATIENT
  Age: 62 Year
  Sex: Male

DRUGS (11)
  1. ASPIRIN [ACETYLSALICYLIC ACID] [Concomitant]
     Active Substance: ASPIRIN
  2. ATORVASTATIN [Concomitant]
     Active Substance: ATORVASTATIN
     Indication: HYPERLIPIDAEMIA
  3. ALBUTEROL SULFATE HFA [Concomitant]
     Active Substance: ALBUTEROL SULFATE
  4. DILTIAZEM. [Concomitant]
     Active Substance: DILTIAZEM
  5. HYDROCODONE/ACETAMINOPHEN [Concomitant]
     Active Substance: ACETAMINOPHEN\HYDROCODONE
  6. NITROGLYCERIN. [Concomitant]
     Active Substance: NITROGLYCERIN
  7. TIZANIDINE. [Concomitant]
     Active Substance: TIZANIDINE
  8. CELECOXIB. [Concomitant]
     Active Substance: CELECOXIB
  9. LISINOPRIL. [Concomitant]
     Active Substance: LISINOPRIL
  10. DUPIXENT [Suspect]
     Active Substance: DUPILUMAB
     Indication: DERMATITIS ATOPIC
     Dosage: 300 MG, QOW
     Route: 058
     Dates: start: 202103, end: 20210530
  11. TACROLIMUS. [Concomitant]
     Active Substance: TACROLIMUS

REACTIONS (2)
  - Knee arthroplasty [Unknown]
  - Hip arthroplasty [Unknown]

NARRATIVE: CASE EVENT DATE: 2021
